FAERS Safety Report 13497275 (Version 1)
Quarter: 2017Q2

REPORT INFORMATION
  Report Type: Report from Study
  Country: US (occurrence: US)
  Receive Date: 20170428
  Receipt Date: 20170428
  Transmission Date: 20170830
  Serious: Yes (Death)
  Sender: FDA-Public Use
  Company Number: US-PFIZER INC-2017065774

PATIENT
  Age: 55 Year
  Sex: Female
  Weight: 59 kg

DRUGS (4)
  1. THIOPENTONE [Suspect]
     Active Substance: THIOPENTAL SODIUM
     Indication: ANAESTHESIA
     Dosage: 50 MG, UNK
  2. PENTOBARBITAL. [Suspect]
     Active Substance: PENTOBARBITAL
     Indication: ANAESTHESIA
     Dosage: 50 MG, UNK
  3. NITROUS OXIDE. [Suspect]
     Active Substance: NITROUS OXIDE
     Indication: ANAESTHESIA
     Dosage: UNK
  4. SUCCINYLCHOLINE CHLORIDE. [Suspect]
     Active Substance: SUCCINYLCHOLINE CHLORIDE
     Indication: ANAESTHESIA
     Dosage: 40 MG, UNK

REACTIONS (2)
  - Myocardial infarction [Fatal]
  - Condition aggravated [Fatal]
